FAERS Safety Report 18606029 (Version 1)
Quarter: 2020Q4

REPORT INFORMATION
  Report Type: Spontaneous
  Country: FR (occurrence: FR)
  Receive Date: 20201211
  Receipt Date: 20201211
  Transmission Date: 20210114
  Serious: Yes (Hospitalization)
  Sender: FDA-Public Use
  Company Number: FR-ACCORD-210341

PATIENT
  Age: 79 Year
  Sex: Female

DRUGS (17)
  1. THIOCOLCHICOSIDE [Concomitant]
     Active Substance: THIOCOLCHICOSIDE
  2. AMLODIPINE [Suspect]
     Active Substance: AMLODIPINE BESYLATE
     Indication: PRODUCT USED FOR UNKNOWN INDICATION
     Route: 048
     Dates: start: 20200928, end: 20201114
  3. SERESTA [Concomitant]
     Active Substance: OXAZEPAM
  4. MIANSERIN [Concomitant]
     Active Substance: MIANSERIN
  5. IRBESARTAN. [Concomitant]
     Active Substance: IRBESARTAN
  6. HYDROCHLOROTHIAZIDE. [Suspect]
     Active Substance: HYDROCHLOROTHIAZIDE
     Indication: PRODUCT USED FOR UNKNOWN INDICATION
     Route: 048
     Dates: start: 20201014, end: 20201114
  7. COLCHICINE. [Concomitant]
     Active Substance: COLCHICINE
  8. FUROSEMIDE. [Suspect]
     Active Substance: FUROSEMIDE
     Indication: PRODUCT USED FOR UNKNOWN INDICATION
     Route: 048
     Dates: start: 20201015
  9. ERTAPENEM/ERTAPENEM SODIUM [Concomitant]
     Active Substance: ERTAPENEM
  10. EUPRESSYL [Concomitant]
     Active Substance: URAPIDIL
  11. PARACETAMOL [Concomitant]
     Active Substance: ACETAMINOPHEN
  12. DIGOXIN. [Concomitant]
     Active Substance: DIGOXIN
  13. COUMADIN [Concomitant]
     Active Substance: WARFARIN SODIUM
  14. BISOPROLOL [Concomitant]
     Active Substance: BISOPROLOL
  15. ALLOPURINOL. [Suspect]
     Active Substance: ALLOPURINOL
     Indication: PRODUCT USED FOR UNKNOWN INDICATION
     Route: 048
     Dates: start: 20201016, end: 20201114
  16. LEVOTHYROXINE. [Concomitant]
     Active Substance: LEVOTHYROXINE
  17. IMIPENEM [Suspect]
     Active Substance: IMIPENEM
     Indication: PRODUCT USED FOR UNKNOWN INDICATION
     Route: 042
     Dates: start: 20201015, end: 20201015

REACTIONS (1)
  - Toxic epidermal necrolysis [Not Recovered/Not Resolved]

NARRATIVE: CASE EVENT DATE: 20201111
